FAERS Safety Report 18103763 (Version 2)
Quarter: 2020Q3

REPORT INFORMATION
  Report Type: Spontaneous
  Country: DE (occurrence: DE)
  Receive Date: 20200803
  Receipt Date: 20200806
  Transmission Date: 20201103
  Serious: Yes (Other)
  Sender: FDA-Public Use
  Company Number: DE-ASTRAZENECA-2020SE95074

PATIENT
  Age: 705 Month
  Sex: Female

DRUGS (1)
  1. KOMBOGLYZE [Suspect]
     Active Substance: METFORMIN HYDROCHLORIDE\SAXAGLIPTIN
     Dosage: 2.5 / 850.0 MG, ONE TABLET IN THE MORNING, AND HALF A TABLET IN THE EVENING
     Route: 048
     Dates: start: 202002, end: 20200728

REACTIONS (8)
  - Abdominal pain upper [Unknown]
  - Thirst [Unknown]
  - Off label use [Unknown]
  - Muscle spasms [Unknown]
  - Tachycardia [Unknown]
  - Vomiting [Unknown]
  - Gastrointestinal pain [Unknown]
  - Fatigue [Unknown]

NARRATIVE: CASE EVENT DATE: 202002
